APPROVED DRUG PRODUCT: PRILOSEC
Active Ingredient: OMEPRAZOLE
Strength: 10MG **Federal Register determination that product was not discontinued or withdrawn for safety or effectiveness reasons**
Dosage Form/Route: CAPSULE, DELAYED REL PELLETS;ORAL
Application: N019810 | Product #003
Applicant: ASTRAZENECA PHARMACEUTICALS LP
Approved: Oct 5, 1995 | RLD: Yes | RS: No | Type: DISCN